FAERS Safety Report 10782865 (Version 1)
Quarter: 2015Q1

REPORT INFORMATION
  Report Type: Spontaneous
  Country: US (occurrence: US)
  Receive Date: 20150210
  Receipt Date: 20150210
  Transmission Date: 20150721
  Serious: No
  Sender: FDA-Public Use
  Company Number: US-GLAXOSMITHKLINE-A1076749A

PATIENT

DRUGS (2)
  1. NICORETTE [Suspect]
     Active Substance: NICOTINE
     Indication: EX-TOBACCO USER
     Route: 002
  2. NICORETTE FRESH MINT [Suspect]
     Active Substance: NICOTINE
     Indication: EX-TOBACCO USER
     Route: 002

REACTIONS (1)
  - Nicotine dependence [Not Recovered/Not Resolved]
